FAERS Safety Report 11596485 (Version 2)
Quarter: 2015Q4

REPORT INFORMATION
  Report Type: Spontaneous
  Country: IT (occurrence: IT)
  Receive Date: 20151006
  Receipt Date: 20151116
  Transmission Date: 20160304
  Serious: Yes (Other)
  Sender: FDA-Public Use
  Company Number: IT-JNJFOC-20150926619

PATIENT
  Age: 70 Year
  Sex: Female
  Weight: 45 kg

DRUGS (2)
  1. SIMEPREVIR [Suspect]
     Active Substance: SIMEPREVIR
     Indication: HEPATIC CIRRHOSIS
     Route: 048
     Dates: start: 20150717, end: 20150901
  2. SOVALDI [Suspect]
     Active Substance: SOFOSBUVIR
     Indication: HEPATIC CIRRHOSIS
     Route: 065
     Dates: start: 20150717, end: 20150901

REACTIONS (1)
  - Cardiac failure congestive [Recovering/Resolving]

NARRATIVE: CASE EVENT DATE: 20150902
